FAERS Safety Report 13342203 (Version 1)
Quarter: 2017Q1

REPORT INFORMATION
  Report Type: Report from Study
  Country: DE (occurrence: DE)
  Receive Date: 20170316
  Receipt Date: 20170316
  Transmission Date: 20170428
  Serious: Yes (Death)
  Sender: FDA-Public Use
  Company Number: DE-PFIZER INC-2017107225

PATIENT
  Age: 6 Month

DRUGS (11)
  1. DOXORUBICIN [Suspect]
     Active Substance: DOXORUBICIN
     Indication: ATYPICAL TERATOID/RHABDOID TUMOUR OF CNS
     Dosage: EVERY 21 DAYS, 6 CYCLES
  2. IFOSFAMIDE. [Suspect]
     Active Substance: IFOSFAMIDE
     Indication: ATYPICAL TERATOID/RHABDOID TUMOUR OF CNS
     Dosage: EVERY 21 DAYS, 6 CYCLES
  3. IDARUBICIN HCL [Suspect]
     Active Substance: IDARUBICIN HYDROCHLORIDE
     Indication: ATYPICAL TERATOID/RHABDOID TUMOUR OF CNS
     Dosage: EIGHT CYCLES, EVERY 3 WEEKS
  4. CYCLOPHOSPHAMIDE. [Suspect]
     Active Substance: CYCLOPHOSPHAMIDE
     Indication: ATYPICAL TERATOID/RHABDOID TUMOUR OF CNS
     Dosage: EVERY 21 DAYS, 6 CYCLES
  5. TROFOSFAMIDE [Suspect]
     Active Substance: TROFOSFAMIDE
     Indication: ATYPICAL TERATOID/RHABDOID TUMOUR OF CNS
     Dosage: EIGHT CYCLES, EVERY 3 WEEKS
  6. ETOPOSIDE. [Suspect]
     Active Substance: ETOPOSIDE
     Dosage: EIGHT CYCLES, EVERY 3 WEEKS
  7. CARBOPLATIN. [Suspect]
     Active Substance: CARBOPLATIN
     Indication: ATYPICAL TERATOID/RHABDOID TUMOUR OF CNS
     Dosage: EVERY 21 DAYS, 6 CYCLES
  8. METHOTREXATE SODIUM. [Suspect]
     Active Substance: METHOTREXATE SODIUM
     Indication: ATYPICAL TERATOID/RHABDOID TUMOUR OF CNS
     Dosage: UNK
  9. TROFOSFAMIDE [Suspect]
     Active Substance: TROFOSFAMIDE
     Dosage: EIGHT CYCLES, EVERY 3 WEEKS
  10. ETOPOSIDE. [Suspect]
     Active Substance: ETOPOSIDE
     Indication: ATYPICAL TERATOID/RHABDOID TUMOUR OF CNS
     Dosage: EVERY 21 DAYS, 6 CYCLES
  11. VINCRISTINE [Suspect]
     Active Substance: VINCRISTINE
     Indication: ATYPICAL TERATOID/RHABDOID TUMOUR OF CNS
     Dosage: EVERY 21 DAYS, 6 CYCLES

REACTIONS (1)
  - Brain herniation [Fatal]
